FAERS Safety Report 26154539 (Version 1)
Quarter: 2025Q4

REPORT INFORMATION
  Report Type: Spontaneous
  Country: JP (occurrence: JP)
  Receive Date: 20251215
  Receipt Date: 20251215
  Transmission Date: 20260117
  Serious: Yes (Other)
  Sender: GENMAB
  Company Number: JP-GENMAB-2025-04011

PATIENT
  Age: 73 Year
  Sex: Male

DRUGS (1)
  1. EPKINLY [Suspect]
     Active Substance: EPCORITAMAB-BYSP
     Indication: B-cell lymphoma
     Dosage: UNK, 11 DOSES
     Route: 065
     Dates: start: 20250130, end: 2025

REACTIONS (3)
  - Aspergillus infection [Unknown]
  - Cytokine release syndrome [Unknown]
  - Cytomegalovirus infection [Unknown]

NARRATIVE: CASE EVENT DATE: 20250101
